FAERS Safety Report 9934313 (Version 3)
Quarter: 2014Q1

REPORT INFORMATION
  Report Type: Spontaneous
  Country: US (occurrence: US)
  Receive Date: 20140228
  Receipt Date: 20140326
  Transmission Date: 20141002
  Serious: Yes (Hospitalization, Disabling, Other)
  Sender: FDA-Public Use
  Company Number: US-BAXTER-2014BAX009929

PATIENT
  Age: 66 Year
  Sex: Female

DRUGS (1)
  1. DIANEAL LOW CALCIUM [Suspect]
     Indication: PERITONEAL DIALYSIS
     Route: 033

REACTIONS (6)
  - General physical health deterioration [Unknown]
  - Visual acuity reduced [Unknown]
  - Bradycardia [Unknown]
  - Peritonitis bacterial [Not Recovered/Not Resolved]
  - Fluid overload [Unknown]
  - Hypotension [Unknown]
